FAERS Safety Report 9063724 (Version 2)
Quarter: 2013Q1

REPORT INFORMATION
  Report Type: Report from Study
  Country: US (occurrence: US)
  Receive Date: 20130131
  Receipt Date: 20130318
  Transmission Date: 20140127
  Serious: Yes (Other)
  Sender: FDA-Public Use
  Company Number: US-RB-014833-10

PATIENT
  Age: 53 Year
  Sex: Male

DRUGS (7)
  1. SUBOXONE TABLET [Suspect]
     Indication: DRUG DEPENDENCE
     Route: 060
     Dates: end: 2010
  2. SUBOXONE FILM [Suspect]
     Indication: DRUG DEPENDENCE
     Dosage: SUBOXONE FILM
     Route: 060
     Dates: start: 2010, end: 2010
  3. SUBOXONE FILM [Suspect]
     Dosage: SUBOXONE FILM; TAPERING DOSING
     Route: 060
     Dates: start: 201205, end: 2012
  4. SUBOXONE FILM [Suspect]
     Dosage: SUBOXONE FILM; 1 AND A HALF STRIPS/DAILY
     Route: 060
     Dates: start: 2012, end: 201302
  5. VALIUM [Concomitant]
     Indication: INSOMNIA
     Dosage: DOSING DETAILS UNKNOWN
     Route: 065
  6. KLONOPIN [Concomitant]
     Indication: ANXIETY
     Dosage: DOSING DETAILS UNKNOWN
     Route: 065
  7. KLONOPIN [Concomitant]
     Indication: INSOMNIA
     Dosage: DOSING DETAILS UNKNOWN
     Route: 065

REACTIONS (11)
  - Insomnia [Not Recovered/Not Resolved]
  - Somnolence [Not Recovered/Not Resolved]
  - Fatigue [Not Recovered/Not Resolved]
  - Arthralgia [Not Recovered/Not Resolved]
  - Condition aggravated [Not Recovered/Not Resolved]
  - Enamel anomaly [Not Recovered/Not Resolved]
  - Condition aggravated [Not Recovered/Not Resolved]
  - Nasopharyngitis [Recovered/Resolved]
  - Hepatitis C [Not Recovered/Not Resolved]
  - Substance abuse [Recovered/Resolved]
  - Drug dependence [Not Recovered/Not Resolved]
